FAERS Safety Report 16378800 (Version 2)
Quarter: 2019Q2

REPORT INFORMATION
  Report Type: Spontaneous
  Country: GB (occurrence: GB)
  Receive Date: 20190531
  Receipt Date: 20190605
  Transmission Date: 20190711
  Serious: Yes (Other)
  Sender: FDA-Public Use
  Company Number: GB-JNJFOC-20190534413

PATIENT
  Age: 30 Year
  Sex: Female

DRUGS (2)
  1. LEVOTHYROXINE. [Concomitant]
     Active Substance: LEVOTHYROXINE
     Route: 065
  2. CILEST [Suspect]
     Active Substance: ETHINYL ESTRADIOL\NORGESTIMATE
     Indication: ORAL CONTRACEPTION
     Route: 048
     Dates: start: 20190430, end: 20190501

REACTIONS (9)
  - Hyperhidrosis [Unknown]
  - Syncope [Unknown]
  - Serotonin syndrome [Recovering/Resolving]
  - Muscle spasms [Unknown]
  - Diarrhoea [Unknown]
  - Aphasia [Unknown]
  - Nausea [Unknown]
  - Clonus [Recovered/Resolved]
  - Hyperreflexia [Unknown]

NARRATIVE: CASE EVENT DATE: 20190430
